FAERS Safety Report 7070707-9 (Version None)
Quarter: 2010Q4

REPORT INFORMATION
  Report Type: 
  Country: None (occurrence: None)
  Receive Date: 20101029
  Receipt Date: 20101019
  Transmission Date: 20110411
  Serious: Yes (Death, Hospitalization)
  Sender: FDA-Public Use
  Company Number: US-JNJFOC-20100908846

PATIENT
  Age: 25 Year
  Sex: Female

DRUGS (2)
  1. ES TYLENOL PM [Suspect]
     Indication: PRODUCT USED FOR UNKNOWN INDICATION
  2. ETHANOL [Suspect]
     Indication: PRODUCT USED FOR UNKNOWN INDICATION

REACTIONS (2)
  - HEPATIC FAILURE [None]
  - INTENTIONAL OVERDOSE [None]
